FAERS Safety Report 6924303-1 (Version None)
Quarter: 2010Q3

REPORT INFORMATION
  Report Type: 
  Country: None (occurrence: None)
  Receive Date: 20100811
  Receipt Date: 20100811
  Transmission Date: 20110219
  Serious: Yes (Other)
  Sender: FDA-Public Use
  Company Number: None

PATIENT
  Sex: Male
  Weight: 68.2 kg

DRUGS (1)
  1. FLOMAX [Suspect]
     Indication: URINARY TRACT OBSTRUCTION
     Dosage: 0.4 MG 2/DAY MOUTH
     Dates: start: 20100730, end: 20100801

REACTIONS (7)
  - BALANCE DISORDER [None]
  - BLOOD PRESSURE INCREASED [None]
  - CHEST PAIN [None]
  - DIZZINESS [None]
  - HYPOTENSION [None]
  - INSOMNIA [None]
  - VISION BLURRED [None]
